FAERS Safety Report 7115477-0 (Version None)
Quarter: 2010Q4

REPORT INFORMATION
  Report Type: 
  Country: None (occurrence: None)
  Receive Date: 20101122
  Receipt Date: 20100223
  Transmission Date: 20110411
  Serious: No
  Sender: FDA-Public Use
  Company Number: US-BAYER-201012713NA

PATIENT
  Age: 56 Year
  Sex: Female
  Weight: 86 kg

DRUGS (1)
  1. CLIMARA PRO [Suspect]
     Indication: HORMONE REPLACEMENT THERAPY
     Dosage: APPPLICATION AT LOWER ABDOMINAL AREA
     Route: 062
     Dates: start: 20090101

REACTIONS (2)
  - APPLICATION SITE URTICARIA [None]
  - SCRATCH [None]
